FAERS Safety Report 8717480 (Version 5)
Quarter: 2014Q2

REPORT INFORMATION
  Report Type: Report from Study
  Country: CA (occurrence: CA)
  Receive Date: 20120810
  Receipt Date: 20140408
  Transmission Date: 20141212
  Serious: Yes (Death, Hospitalization)
  Sender: FDA-Public Use
  Company Number: CA-JNJFOC-20120803222

PATIENT
  Age: 60 Year
  Sex: Male
  Weight: 98 kg

DRUGS (6)
  1. USTEKINUMAB [Suspect]
     Indication: PSORIASIS
     Route: 058
     Dates: start: 20101201, end: 20140127
  2. USTEKINUMAB [Suspect]
     Indication: PSORIASIS
     Route: 058
     Dates: start: 200906
  3. DIAMICRON [Concomitant]
  4. VALSARTAN [Concomitant]
  5. AMLODIPINE [Concomitant]
  6. JANUVIA [Concomitant]

REACTIONS (3)
  - Death [Fatal]
  - Pneumonia [Recovered/Resolved]
  - Tularaemia [Recovered/Resolved]
